FAERS Safety Report 12875539 (Version 1)
Quarter: 2016Q4

REPORT INFORMATION
  Report Type: Report from Study
  Country: US (occurrence: US)
  Receive Date: 20161024
  Receipt Date: 20161024
  Transmission Date: 20170207
  Serious: Yes (Hospitalization)
  Sender: FDA-Public Use
  Company Number: US-ALEXION-A201607935

PATIENT
  Sex: Female

DRUGS (1)
  1. SOLIRIS [Suspect]
     Active Substance: ECULIZUMAB
     Indication: PAROXYSMAL NOCTURNAL HAEMOGLOBINURIA
     Dosage: 1200 MG, Q2W
     Route: 042
     Dates: start: 20160802, end: 20161011

REACTIONS (4)
  - Incorrect dose administered [Recovered/Resolved]
  - Peripheral swelling [Unknown]
  - Menorrhagia [Unknown]
  - Headache [Unknown]

NARRATIVE: CASE EVENT DATE: 20160802
